FAERS Safety Report 8472441-7 (Version None)
Quarter: 2012Q2

REPORT INFORMATION
  Report Type: 
  Country: None (occurrence: None)
  Receive Date: 20120627
  Receipt Date: 20111102
  Transmission Date: 20120825
  Serious: No
  Sender: FDA-Public Use
  Company Number: US-AMGEN-USASP2011057669

PATIENT
  Age: 75 Year
  Sex: Female
  Weight: 102.4 kg

DRUGS (18)
  1. METOPROLOL TARTRATE [Concomitant]
     Indication: BLOOD PRESSURE ABNORMAL
     Dosage: 50 MG, QD
  2. HYDROCHLOROTHIAZIDE [Concomitant]
     Indication: BLOOD PRESSURE ABNORMAL
     Dosage: 12.5 MG, QD
     Route: 048
  3. ALLOPURINOL [Concomitant]
     Indication: GOUT
  4. DILANTIN [Concomitant]
     Indication: CONVULSION
     Dosage: 400 MG, QD
     Route: 048
  5. OYSTER SHELL CALCIUM +D [Concomitant]
     Dosage: UNK
  6. ZYRTEC [Concomitant]
     Indication: SEASONAL ALLERGY
     Dosage: UNK
  7. ASPIRIN [Concomitant]
     Dosage: 300 MG, QD
     Route: 048
  8. LASIX [Concomitant]
     Dosage: 40 MG, QD
     Route: 048
  9. LORAZEPAM [Concomitant]
     Dosage: UNK
  10. CYMBALTA [Concomitant]
     Dosage: 60 MG, QD
     Route: 048
  11. PROCRIT [Suspect]
     Indication: ANAEMIA
     Dosage: 20000 IU, Q2WK
     Route: 058
     Dates: start: 20111101
  12. AVANDAMET [Concomitant]
     Indication: DIABETES MELLITUS
     Dosage: 1000 UNK, UNK
  13. SEROQUEL [Concomitant]
     Dosage: 300 MG, QD
     Route: 048
  14. HYDROCODONE BITARTRATE + ACETAMINOPHEN [Concomitant]
     Indication: PAIN
     Dosage: 500 MG, UNK
     Route: 048
  15. LIPITOR [Concomitant]
     Indication: BLOOD CHOLESTEROL ABNORMAL
     Dosage: 80 MG, QD
     Route: 048
  16. ANASTROZOLE [Concomitant]
     Indication: NEOPLASM MALIGNANT
     Dosage: 1 MG, QD
     Route: 048
  17. ALLOPURINOL [Concomitant]
     Indication: RENAL DISORDER
     Dosage: 200 MG, QD
     Route: 048
  18. PLAVIX [Concomitant]
     Dosage: 75 MG, QD
     Route: 048

REACTIONS (8)
  - BONE PAIN [None]
  - PAIN [None]
  - MUSCULOSKELETAL STIFFNESS [None]
  - NAUSEA [None]
  - VOMITING [None]
  - DYSPNOEA [None]
  - HEADACHE [None]
  - NECK PAIN [None]
